FAERS Safety Report 4917494-5 (Version None)
Quarter: 2006Q1

REPORT INFORMATION
  Report Type: 
  Country: None (occurrence: None)
  Receive Date: 20060221
  Receipt Date: 20050930
  Transmission Date: 20060701
  Serious: Yes (Hospitalization, Disabling)
  Sender: FDA-Public Use
  Company Number: US-MERCK-0510USA01965

PATIENT
  Age: 57 Year
  Sex: Female
  Weight: 82 kg

DRUGS (6)
  1. VIOXX [Suspect]
     Indication: OSTEOARTHRITIS
     Route: 048
     Dates: start: 19990806, end: 20030327
  2. METHYLDOPA [Concomitant]
     Route: 065
  3. PREMARIN [Concomitant]
     Route: 065
  4. PREVACID [Concomitant]
     Route: 065
  5. SECTRAL [Concomitant]
     Route: 065
  6. CARDIS [Concomitant]
     Route: 065

REACTIONS (8)
  - CEREBROVASCULAR ACCIDENT [None]
  - DIABETES MELLITUS [None]
  - ISCHAEMIC STROKE [None]
  - MIGRAINE [None]
  - NEUROPATHY PERIPHERAL [None]
  - SINUS BRADYCARDIA [None]
  - SKIN CANCER [None]
  - SLEEP APNOEA SYNDROME [None]
